FAERS Safety Report 6841270-X (Version None)
Quarter: 2010Q3

REPORT INFORMATION
  Report Type: 
  Country: None (occurrence: None)
  Receive Date: 20100714
  Receipt Date: 20070702
  Transmission Date: 20110219
  Serious: No
  Sender: FDA-Public Use
  Company Number: US-PFIZER INC-2007055466

PATIENT
  Sex: Male

DRUGS (2)
  1. CHANTIX [Suspect]
     Dates: start: 20070702
  2. DRUG, UNSPECIFIED [Concomitant]
     Indication: ANXIETY

REACTIONS (2)
  - ASTHENIA [None]
  - THERAPEUTIC RESPONSE UNEXPECTED [None]
